FAERS Safety Report 5831490-5 (Version None)
Quarter: 2008Q3

REPORT INFORMATION
  Report Type: 
  Country: None (occurrence: None)
  Receive Date: 20080801
  Receipt Date: 20080724
  Transmission Date: 20090109
  Serious: Yes (Hospitalization)
  Sender: FDA-Public Use
  Company Number: US-GENENTECH-265173

PATIENT
  Sex: Female

DRUGS (11)
  1. BEVACIZUMAB [Suspect]
     Indication: OVARIAN CANCER
     Dosage: UNK
     Dates: start: 20080714
  2. TAXOL [Suspect]
     Indication: OVARIAN CANCER
     Dosage: UNK
     Route: 033
     Dates: start: 20080714
  3. CISPLATIN [Suspect]
     Indication: OVARIAN CANCER
     Dosage: UNK
     Dates: start: 20080714
  4. ACETAMINOFEN [Concomitant]
     Indication: DRUG USE FOR UNKNOWN INDICATION
     Dosage: 2 TABLET, UNK
     Dates: start: 20000707
  5. APREPITANT [Concomitant]
     Indication: DRUG USE FOR UNKNOWN INDICATION
     Dosage: 80 MG, UNK
     Dates: start: 20080707
  6. ATORVASTATIN [Concomitant]
     Indication: DRUG USE FOR UNKNOWN INDICATION
     Dosage: 10 MG, UNK
     Dates: start: 20080707
  7. DEXAMETHASONE [Concomitant]
     Indication: DRUG USE FOR UNKNOWN INDICATION
     Dosage: 12 MG, UNK
     Dates: start: 20080707
  8. DEXAMETHASONE [Concomitant]
     Dosage: 20 MG, UNK
     Dates: start: 20080707
  9. DOCUSATE SODIUM [Concomitant]
     Indication: DRUG USE FOR UNKNOWN INDICATION
     Dosage: 100 G, UNK
     Dates: start: 20080707
  10. ESOMEPRAZOLE MAGNESIUM [Concomitant]
     Indication: DRUG USE FOR UNKNOWN INDICATION
     Dosage: 40 MG, UNK
     Dates: start: 20080707
  11. ONDANSETRON [Concomitant]
     Indication: DRUG USE FOR UNKNOWN INDICATION
     Dosage: 8 MG, UNK
     Dates: start: 20080707

REACTIONS (1)
  - BLOOD CREATININE INCREASED [None]
